FAERS Safety Report 9112809 (Version 1)
Quarter: 2013Q1

REPORT INFORMATION
  Report Type: Spontaneous
  Country: US (occurrence: US)
  Receive Date: 20130211
  Receipt Date: 20130211
  Transmission Date: 20140127
  Serious: No
  Sender: FDA-Public Use
  Company Number: US-ASTRAZENECA-2013SE03131

PATIENT
  Age: 73 Year
  Sex: Male
  Weight: 90.7 kg

DRUGS (4)
  1. CRESTOR [Suspect]
     Indication: BLOOD CHOLESTEROL INCREASED
     Route: 048
  2. LIPITOR [Suspect]
     Route: 065
  3. SIMVASTATIN [Suspect]
     Route: 065
  4. PENTASA [Concomitant]
     Indication: COLITIS

REACTIONS (1)
  - Adverse drug reaction [Unknown]
